FAERS Safety Report 22219743 (Version 1)
Quarter: 2023Q2

REPORT INFORMATION
  Report Type: Report from Study
  Country: US (occurrence: US)
  Receive Date: 20230417
  Receipt Date: 20230417
  Transmission Date: 20230721
  Serious: Yes (Other)
  Sender: FDA-Public Use
  Company Number: US-ABBVIE-4729456

PATIENT
  Sex: Female

DRUGS (1)
  1. HUMIRA [Suspect]
     Active Substance: ADALIMUMAB
     Indication: Hidradenitis
     Dosage: CITRATE FREE
     Route: 058
     Dates: start: 20221024

REACTIONS (4)
  - Spinal operation [Recovered/Resolved]
  - Mastitis [Recovering/Resolving]
  - Poisoning [Recovered/Resolved]
  - Renal cyst [Not Recovered/Not Resolved]
